FAERS Safety Report 23429959 (Version 1)
Quarter: 2024Q1

REPORT INFORMATION
  Report Type: Spontaneous
  Country: NO (occurrence: NO)
  Receive Date: 20240122
  Receipt Date: 20240122
  Transmission Date: 20240410
  Serious: Yes (Hospitalization, Other)
  Sender: FDA-Public Use
  Company Number: None

PATIENT
  Age: 34 Year
  Sex: Female

DRUGS (1)
  1. BOTOX [Suspect]
     Active Substance: ONABOTULINUMTOXINA
     Indication: Migraine
     Dosage: TIME INTERVAL: AS NECESSARY: INJECTIONS EVERY 8TH WEEKS, STRENGTH 200 IU
     Route: 050

REACTIONS (8)
  - Brain fog [Not Recovered/Not Resolved]
  - Deafness unilateral [Not Recovered/Not Resolved]
  - Dizziness [Recovering/Resolving]
  - Hypoaesthesia [Not Recovered/Not Resolved]
  - Tinnitus [Unknown]
  - Ageusia [Not Recovered/Not Resolved]
  - Ear discomfort [Unknown]
  - Feeling abnormal [Unknown]

NARRATIVE: CASE EVENT DATE: 20231206
